FAERS Safety Report 4297459-X (Version None)
Quarter: 2004Q1

REPORT INFORMATION
  Report Type: 
  Country: None (occurrence: None)
  Receive Date: 20040213
  Receipt Date: 20040203
  Transmission Date: 20041129
  Serious: Yes (Death, Hospitalization)
  Sender: FDA-Public Use
  Company Number: 04P-163-0249229-00

PATIENT
  Sex: Male

DRUGS (3)
  1. HUMIRA [Suspect]
     Indication: RHEUMATOID ARTHRITIS
     Dosage: 40 MG, 1 IN 2 WK, SUBCUTANEOUS
     Route: 058
     Dates: start: 20031218
  2. PREDNISONE [Concomitant]
  3. METHOTREXATE SODIUM [Concomitant]

REACTIONS (2)
  - CORONARY ARTERY SURGERY [None]
  - ELECTROCARDIOGRAM ABNORMAL [None]
